FAERS Safety Report 7364498 (Version 3)
Quarter: 2020Q2

REPORT INFORMATION
  Report Type: Spontaneous
  Country: US (occurrence: US)
  Receive Date: 20100423
  Receipt Date: 20200617
  Transmission Date: 20200714
  Serious: Yes (Other)
  Sender: FDA-Public Use
  Company Number: US-PFIZER INC-2008092745

PATIENT
  Age: 53 Year
  Sex: Male
  Weight: 97 kg

DRUGS (6)
  1. HYDROCHLOROTHIAZIDE. [Interacting]
     Active Substance: HYDROCHLOROTHIAZIDE
     Indication: BLOOD PRESSURE ABNORMAL
     Dosage: UNK
     Route: 048
     Dates: start: 201003
  2. AMOXICILLIN. [Interacting]
     Active Substance: AMOXICILLIN
     Indication: SINUSITIS
     Dosage: UNK
     Dates: start: 20100406
  3. CAVERJECT [Suspect]
     Active Substance: ALPROSTADIL
     Indication: ERECTILE DYSFUNCTION
     Dosage: 20 UG, UNK
     Dates: start: 2008
  4. COSOPT [Suspect]
     Active Substance: DORZOLAMIDE HYDROCHLORIDE\TIMOLOL MALEATE
     Dosage: UNK
  5. PRED FORTE [Concomitant]
     Active Substance: PREDNISOLONE ACETATE
     Dosage: UNK
  6. CAVERJECT [Interacting]
     Active Substance: ALPROSTADIL
     Dosage: 40 UG, AS NEEDED

REACTIONS (11)
  - Penile pain [Recovered/Resolved]
  - Blood pressure abnormal [Unknown]
  - Drug ineffective [Unknown]
  - Genital paraesthesia [Unknown]
  - Incorrect dose administered [Unknown]
  - Drug interaction [Unknown]
  - Penile curvature [Unknown]
  - Sinusitis [Unknown]
  - Testicular pain [Unknown]
  - Dizziness [Recovered/Resolved]
  - Therapeutic product effect decreased [Unknown]

NARRATIVE: CASE EVENT DATE: 2008
